FAERS Safety Report 19437761 (Version 1)
Quarter: 2021Q2

REPORT INFORMATION
  Report Type: Report from Study
  Country: PA (occurrence: PA)
  Receive Date: 20210618
  Receipt Date: 20210618
  Transmission Date: 20210717
  Serious: Yes (Other)
  Sender: FDA-Public Use
  Company Number: NVSC2021PA130218

PATIENT
  Age: 76 Year
  Sex: Female

DRUGS (1)
  1. CO?DIOVAN [Suspect]
     Active Substance: HYDROCHLOROTHIAZIDE\VALSARTAN
     Indication: PRODUCT USED FOR UNKNOWN INDICATION
     Dosage: 1 DF (320/25 MG) STARTED IN MAR 2021 APPROXIMATELY
     Route: 065

REACTIONS (4)
  - Drug intolerance [Unknown]
  - Nerve degeneration [Unknown]
  - Wrong technique in product usage process [Unknown]
  - Chest pain [Unknown]
